FAERS Safety Report 8409860-0 (Version None)
Quarter: 2012Q2

REPORT INFORMATION
  Report Type: 
  Country: None (occurrence: None)
  Receive Date: 20120605
  Receipt Date: 20120605
  Transmission Date: 20120825
  Serious: Yes (Death)
  Sender: FDA-Public Use
  Company Number: US-PFIZER INC-2009RR-27231

PATIENT
  Age: 56 Year
  Sex: Female

DRUGS (1)
  1. VERAPAMIL HCL [Suspect]
     Dosage: 240 MG, UNK
     Route: 048

REACTIONS (9)
  - BLOOD POTASSIUM DECREASED [None]
  - CARDIAC ARREST [None]
  - PULSELESS ELECTRICAL ACTIVITY [None]
  - INTESTINAL ISCHAEMIA [None]
  - BLOOD CALCIUM INCREASED [None]
  - BLOOD PH DECREASED [None]
  - HYPOTENSION [None]
  - ILEUS [None]
  - COMPLETED SUICIDE [None]
